FAERS Safety Report 4976424-0 (Version None)
Quarter: 2006Q2

REPORT INFORMATION
  Report Type: 
  Country: None (occurrence: None)
  Receive Date: 20060412
  Receipt Date: 20060330
  Transmission Date: 20061013
  Serious: Yes (Other)
  Sender: FDA-Public Use
  Company Number: 2006044833

PATIENT
  Sex: Male
  Weight: 88.905 kg

DRUGS (9)
  1. VIAGRA [Suspect]
     Indication: ERECTILE DYSFUNCTION
     Dosage: 50 MG (50 MG, AS NECESSARY), ORAL
     Route: 048
  2. CELLCEPT [Suspect]
     Indication: MYASTHENIA GRAVIS
  3. PREDNISONE TAB [Concomitant]
  4. BENICAR [Concomitant]
  5. NORVASC [Concomitant]
  6. ENALAPRIL MALEATE [Concomitant]
  7. HYDROCHLOROTHIAZIDE [Concomitant]
  8. DIPYRIDAMOLE [Concomitant]
  9. NEXIUM [Concomitant]

REACTIONS (7)
  - BLINDNESS [None]
  - BODY HEIGHT DECREASED [None]
  - DIABETES MELLITUS [None]
  - DRUG EFFECT DECREASED [None]
  - EYE HAEMORRHAGE [None]
  - FEAR [None]
  - MACULAR DEGENERATION [None]
